FAERS Safety Report 5118897-9 (Version None)
Quarter: 2006Q3

REPORT INFORMATION
  Report Type: 
  Country: None (occurrence: None)
  Receive Date: 20060926
  Receipt Date: 20060914
  Transmission Date: 20061208
  Serious: Yes (Hospitalization, Other)
  Sender: FDA-Public Use
  Company Number: HQWYE165404MAY06

PATIENT
  Age: 58 Year
  Sex: Female

DRUGS (5)
  1. PANTOPRAZOLE SODIUM [Suspect]
     Indication: GASTROOESOPHAGEAL REFLUX DISEASE
     Dosage: 40 MG 1X PER 1 DAY
     Route: 048
     Dates: start: 20031029, end: 20060324
  2. CELEBREX [Suspect]
     Indication: BACK PAIN
     Dosage: 200 MG 1X PER 1 DAY
     Route: 048
     Dates: start: 20041005, end: 20060308
  3. MOTILIUM [Concomitant]
  4. BACLOFEN [Concomitant]
  5. DIAZEPAM [Concomitant]

REACTIONS (2)
  - IRON DEFICIENCY ANAEMIA [None]
  - OESOPHAGITIS ULCERATIVE [None]
